FAERS Safety Report 23151299 (Version 1)
Quarter: 2023Q4

REPORT INFORMATION
  Report Type: Spontaneous
  Country: DE (occurrence: DE)
  Receive Date: 20231107
  Receipt Date: 20231107
  Transmission Date: 20240109
  Serious: Yes (Other)
  Sender: FDA-Public Use
  Company Number: None

PATIENT
  Age: 21 Year
  Sex: Female
  Weight: 52 kg

DRUGS (2)
  1. LEVETIRACETAM [Suspect]
     Active Substance: LEVETIRACETAM
     Indication: Partial seizures
     Dosage: 500MG (250MG MORGENS, 250MG ABENDS) ?500MG (250MG IN THE MORNING, 250MG IN THE EVENING)
     Route: 048
     Dates: start: 20230411, end: 20230620
  2. LAMOTRIGINE [Concomitant]
     Active Substance: LAMOTRIGINE
     Indication: Product used for unknown indication

REACTIONS (5)
  - Partial seizures [Unknown]
  - Condition aggravated [Unknown]
  - Headache [Recovering/Resolving]
  - Sleep disorder [Recovering/Resolving]
  - Middle insomnia [Recovering/Resolving]

NARRATIVE: CASE EVENT DATE: 20230101
